FAERS Safety Report 5706599-7 (Version None)
Quarter: 2008Q2

REPORT INFORMATION
  Report Type: 
  Country: None (occurrence: None)
  Receive Date: 20080415
  Receipt Date: 20080401
  Transmission Date: 20081010
  Serious: Yes (Hospitalization)
  Sender: FDA-Public Use
  Company Number: US-ELI_LILLY_AND_COMPANY-US200801003088

PATIENT
  Age: 62 Year
  Sex: Female

DRUGS (8)
  1. CYMBALTA [Suspect]
     Indication: NEUROPATHY PERIPHERAL
     Dosage: 60 MG, DAILY (1/D)
  2. AMBIEN [Concomitant]
  3. OPIOIDS [Concomitant]
  4. ADDERALL 10 [Concomitant]
     Dosage: 1 D/F, UNK
  5. NEURONTIN [Concomitant]
     Dosage: 1 D/F, UNK
  6. HYDROCODONE BITARTRATE [Concomitant]
     Dosage: 1 D/F, UNK
  7. LAMICTAL [Concomitant]
     Dosage: 1 D/F, UNK
  8. WELLBUTRIN [Concomitant]
     Dosage: 1 D/F, UNK

REACTIONS (1)
  - AMNESIA [None]
